FAERS Safety Report 9322376 (Version 3)
Quarter: 2013Q2

REPORT INFORMATION
  Report Type: Report from Study
  Country: NL (occurrence: NL)
  Receive Date: 20130531
  Receipt Date: 20130618
  Transmission Date: 20140414
  Serious: Yes (Other)
  Sender: FDA-Public Use
  Company Number: NL-ASTRAZENECA-2013SE37728

PATIENT
  Age: 20226 Day
  Sex: Male
  Weight: 95 kg

DRUGS (19)
  1. VANDETANIB [Suspect]
     Indication: MEDULLARY THYROID CANCER
     Route: 048
     Dates: start: 20121129, end: 20130428
  2. VANDETANIB [Suspect]
     Indication: MEDULLARY THYROID CANCER
     Route: 048
     Dates: start: 20130516, end: 20130518
  3. VANDETANIB [Suspect]
     Indication: MEDULLARY THYROID CANCER
     Route: 048
     Dates: start: 20130519, end: 20130519
  4. THYRAX [Concomitant]
     Indication: HYPOTHYROIDISM
     Route: 048
     Dates: end: 20130128
  5. THYRAX [Concomitant]
     Indication: BLOOD THYROID STIMULATING HORMONE INCREASED
     Route: 048
     Dates: end: 20130128
  6. THYRAX [Concomitant]
     Indication: HYPOTHYROIDISM
     Route: 048
     Dates: start: 20130129, end: 20130227
  7. THYRAX [Concomitant]
     Indication: BLOOD THYROID STIMULATING HORMONE INCREASED
     Route: 048
     Dates: start: 20130129, end: 20130227
  8. THYRAX [Concomitant]
     Indication: HYPOTHYROIDISM
     Route: 048
     Dates: start: 20130228
  9. THYRAX [Concomitant]
     Indication: BLOOD THYROID STIMULATING HORMONE INCREASED
     Route: 048
     Dates: start: 20130228
  10. ALFACALCIDOL [Concomitant]
     Indication: HYPOCALCAEMIA
     Route: 048
     Dates: start: 20070701
  11. LOPERAMIDE [Concomitant]
     Indication: DIARRHOEA
     Route: 048
  12. KETOCONAZOL [Concomitant]
     Indication: RASH
     Route: 003
     Dates: start: 20130124
  13. KETOCONAZOL [Concomitant]
     Indication: RASH
     Route: 003
     Dates: start: 20130124
  14. CALCIUM [Concomitant]
     Indication: HYPOCALCAEMIA
     Route: 048
     Dates: start: 20121126
  15. MINOCYCLINE [Concomitant]
     Indication: RASH
     Route: 048
     Dates: start: 20130227, end: 20130501
  16. MINOCYCLINE [Concomitant]
     Indication: RASH
     Route: 048
     Dates: start: 20130516
  17. SIMVASTATINE [Concomitant]
     Indication: MYOCARDIAL INFARCTION
     Route: 048
     Dates: start: 20130428
  18. CARBASALAATCALCIUM [Concomitant]
     Indication: MYOCARDIAL INFARCTION
     Route: 048
     Dates: start: 20130428
  19. AMLODIPINE [Concomitant]
     Indication: MYOCARDIAL INFARCTION
     Route: 048
     Dates: start: 20130428

REACTIONS (1)
  - Angina pectoris [Recovered/Resolved]
